FAERS Safety Report 9528151 (Version 1)
Quarter: 2013Q1

REPORT INFORMATION
  Report Type: Spontaneous
  Country: US (occurrence: None)
  Receive Date: 20130314
  Receipt Date: 20130314
  Transmission Date: 20140127
  Serious: Yes (Other)
  Sender: FDA-Public Use
  Company Number: 1212USA010992

PATIENT
  Age: 33 Year
  Sex: Male
  Weight: 83.9 kg

DRUGS (6)
  1. VICTRELIS [Suspect]
     Indication: HEPATITIS C
     Dosage: 800 MG, TID (EVERY 7-9 HOURS), ORAL
     Route: 048
  2. RIBAVIRIN (RIBAVIRIN) CAPSULE, 200MG [Suspect]
     Dosage: ORAL
     Route: 048
  3. PEGASYS [Suspect]
     Dosage: SUBCUTANEOUS
     Route: 058
  4. IBUPROFEN (IBUPROFEN) CAPSULE, 200 MG [Concomitant]
  5. ZOLPIDEM TARTRATE (ZOLPIDEM TARTRATE) TABLET, 5 MG [Concomitant]
  6. TYLENOL 8 HOUR EXTENDED RELEASE (ACETAMINOPHEN) TABLET, 650 MG [Concomitant]

REACTIONS (9)
  - Pruritus [None]
  - Dysgeusia [None]
  - Influenza like illness [None]
  - Dry skin [None]
  - Cough [None]
  - Nausea [None]
  - Arthralgia [None]
  - Fatigue [None]
  - Muscle spasms [None]
